FAERS Safety Report 4511019-4 (Version None)
Quarter: 2004Q4

REPORT INFORMATION
  Report Type: 
  Country: None (occurrence: None)
  Receive Date: 20041018
  Receipt Date: 20040812
  Transmission Date: 20050328
  Serious: No
  Sender: FDA-Public Use
  Company Number: 208408

PATIENT
  Age: 31 Year
  Sex: Female
  Weight: 122.4 kg

DRUGS (4)
  1. XOLAIR [Suspect]
     Indication: ASTHMA
     Dosage: 300 MG, Q4W, SUBCUTANEOUS
     Route: 058
  2. ADVAIR (FLUTICASONE PROPIONATE, SALMETEROL XINAFOATE) [Concomitant]
  3. ZYRTEC [Concomitant]
  4. LEVOXYL [Concomitant]

REACTIONS (2)
  - DIARRHOEA [None]
  - URTICARIA [None]
